FAERS Safety Report 12966035 (Version 2)
Quarter: 2016Q4

REPORT INFORMATION
  Report Type: Spontaneous
  Country: PR (occurrence: PR)
  Receive Date: 20161122
  Receipt Date: 20161213
  Transmission Date: 20170207
  Serious: Yes (Hospitalization)
  Sender: FDA-Public Use
  Company Number: PR-UNITED THERAPEUTICS-UNT-2016-016617

PATIENT
  Sex: Female
  Weight: 88.44 kg

DRUGS (2)
  1. REMODULIN [Suspect]
     Active Substance: TREPROSTINIL
     Dosage: 0.037 ?G/KG, CONTINUING
     Route: 058
  2. REMODULIN [Suspect]
     Active Substance: TREPROSTINIL
     Indication: PULMONARY ARTERIAL HYPERTENSION
     Dosage: 0.0378 ?G/KG, CONTINUING
     Route: 058
     Dates: start: 20150604

REACTIONS (9)
  - Weight increased [Unknown]
  - Dyspnoea [Unknown]
  - Headache [Unknown]
  - Cardiac operation [Unknown]
  - Fatigue [Unknown]
  - Cardiac failure congestive [Unknown]
  - Hypertension [Unknown]
  - Diarrhoea [Unknown]
  - Therapy non-responder [Unknown]

NARRATIVE: CASE EVENT DATE: 20160930
